FAERS Safety Report 10962087 (Version 1)
Quarter: 2015Q1

REPORT INFORMATION
  Report Type: Spontaneous
  Country: US (occurrence: US)
  Receive Date: 20150327
  Receipt Date: 20150327
  Transmission Date: 20150721
  Serious: No
  Sender: FDA-Public Use
  Company Number: US-PFIZER INC-2015097166

PATIENT
  Age: 60 Year
  Sex: Male
  Weight: 97.51 kg

DRUGS (2)
  1. NARDIL [Suspect]
     Active Substance: PHENELZINE SULFATE
     Indication: DEPRESSION
     Dosage: 650 MG, DAILY
     Dates: start: 1987
  2. XANAX [Concomitant]
     Active Substance: ALPRAZOLAM
     Dosage: 0.25 MG, 3X/DAY (IN THE MORNING, LUNCH AND DINNER)

REACTIONS (1)
  - Balance disorder [Recovered/Resolved]
